FAERS Safety Report 4583797-X (Version None)
Quarter: 2005Q1

REPORT INFORMATION
  Report Type: 
  Country: None (occurrence: None)
  Receive Date: 20050216
  Receipt Date: 20050113
  Transmission Date: 20050727
  Serious: No
  Sender: FDA-Public Use
  Company Number: US-GLAXOSMITHKLINE-A0540819A

PATIENT
  Age: 40 Year
  Sex: Female
  Weight: 46.1 kg

DRUGS (2)
  1. LOTRONEX [Suspect]
     Dosage: .5MG PER DAY
     Route: 048
     Dates: start: 20041214, end: 20041217
  2. PREVACID [Suspect]
     Indication: ILL-DEFINED DISORDER
     Dosage: 30MG PER DAY
     Route: 048

REACTIONS (3)
  - PHOTODERMATOSIS [None]
  - PHOTOSENSITIVITY REACTION [None]
  - PRURITUS [None]
